FAERS Safety Report 5270627-6 (Version None)
Quarter: 2007Q1

REPORT INFORMATION
  Report Type: 
  Country: None (occurrence: None)
  Receive Date: 20061214
  Receipt Date: 20060918
  Transmission Date: 20070707
  Serious: Yes (Hospitalization)
  Sender: FDA-Public Use
  Company Number: 2006113605

PATIENT
  Sex: Male

DRUGS (3)
  1. BEXTRA [Suspect]
     Indication: OSTEOARTHRITIS
     Dates: start: 20021022, end: 20021122
  2. CELEBREX [Suspect]
     Indication: OSTEOARTHRITIS
     Dates: start: 20001108, end: 20001207
  3. VIOXX [Suspect]
     Dosage: ORAL
     Route: 048
     Dates: start: 20001208, end: 20031201

REACTIONS (1)
  - MYOCARDIAL INFARCTION [None]
